FAERS Safety Report 5625840-2 (Version None)
Quarter: 2008Q1

REPORT INFORMATION
  Report Type: 
  Country: None (occurrence: None)
  Receive Date: 20080213
  Receipt Date: 20080213
  Transmission Date: 20080703
  Serious: Yes (Other)
  Sender: FDA-Public Use
  Company Number: None

PATIENT
  Sex: Male
  Weight: 86.1834 kg

DRUGS (1)
  1. TAMIFLU [Suspect]
     Dosage: 1 TWICE DAILY PO
     Route: 048
     Dates: start: 20080206, end: 20080208

REACTIONS (2)
  - AGITATION [None]
  - SELF-INJURIOUS IDEATION [None]
